FAERS Safety Report 6398409-2 (Version None)
Quarter: 2009Q4

REPORT INFORMATION
  Report Type: 
  Country: None (occurrence: None)
  Receive Date: 20091007
  Receipt Date: 20090928
  Transmission Date: 20100525
  Serious: Yes (Other)
  Sender: FDA-Public Use
  Company Number: 230135J09BRA

PATIENT
  Sex: Female

DRUGS (14)
  1. REBIF [Suspect]
     Dosage: 22 MCG, 3 IN 1 WEEKS
     Dates: start: 20020101
  2. FENOFIBRATO (FENOFIBRATE) [Concomitant]
  3. SINVASTATINA (SIMVASTATIN) [Concomitant]
  4. ENALAPRIL MALEATE [Concomitant]
  5. VASOPRIL (ENALAPRIL MALEATE) [Concomitant]
  6. ATENOLOL [Concomitant]
  7. ALDOMET (METHYLDOPA) [Concomitant]
  8. AMITRIPTILIN (AMITRIPTYLINE HYDROCHLORIDE) [Concomitant]
  9. HYDROCHLOROTIAZIDA (HYDROCHLOROTHIAZIDE) [Concomitant]
  10. TYLENOL [Concomitant]
  11. FUROSEMIDE (FUROSEMIDE /00032601/) [Concomitant]
  12. RIVOTIL (CLONAZEPAM) [Concomitant]
  13. TIMOLOL (TOMOLOL /00371201/) [Concomitant]
  14. LACRIBELL (CARBOMER) [Concomitant]

REACTIONS (11)
  - CHILLS [None]
  - DRY EYE [None]
  - EAR PAIN [None]
  - GLAUCOMA [None]
  - LACRIMATION DECREASED [None]
  - MALAISE [None]
  - MASTICATION DISORDER [None]
  - MULTIPLE SCLEROSIS RELAPSE [None]
  - PAIN IN EXTREMITY [None]
  - SPEECH DISORDER [None]
  - TINNITUS [None]
